FAERS Safety Report 7643884-6 (Version None)
Quarter: 2011Q3

REPORT INFORMATION
  Report Type: 
  Country: None (occurrence: None)
  Receive Date: 20110729
  Receipt Date: 20101223
  Transmission Date: 20111222
  Serious: No
  Sender: FDA-Public Use
  Company Number: US-GLAXOSMITHKLINE-A0901724A

PATIENT
  Age: 64 Year
  Sex: Female

DRUGS (1)
  1. IMITREX [Suspect]
     Dosage: 100MG AS REQUIRED
     Route: 048

REACTIONS (1)
  - MALAISE [None]
